FAERS Safety Report 8500920-2 (Version None)
Quarter: 2012Q3

REPORT INFORMATION
  Report Type: 
  Country: None (occurrence: None)
  Receive Date: 20120710
  Receipt Date: 20120709
  Transmission Date: 20120928
  Serious: Yes (Death)
  Sender: FDA-Public Use
  Company Number: PHHO2012PL002660

PATIENT
  Sex: Male
  Weight: 87.7 kg

DRUGS (10)
  1. CARVEDILOL [Concomitant]
     Indication: CARDIAC FAILURE CHRONIC
     Dosage: 12.5 MG, BID
     Route: 048
     Dates: start: 20100301
  2. SPIRONOLACTONE [Concomitant]
     Indication: CARDIAC FAILURE CHRONIC
     Dosage: 25 MG, QD
     Route: 048
     Dates: start: 19960808
  3. FUROSEMIDE [Concomitant]
     Indication: CARDIAC FAILURE CHRONIC
     Dosage: 40 MG, QD
     Route: 048
     Dates: start: 19960404
  4. SIMVASTATIN [Concomitant]
     Indication: CORONARY ARTERY DISEASE
     Dosage: UNK
     Route: 048
     Dates: start: 19980225
  5. ALLOPURINOL [Concomitant]
     Indication: HYPERKALAEMIA
     Dosage: 100 MG, QD
     Route: 048
     Dates: start: 20100301
  6. ASPIRIN [Concomitant]
     Indication: CORONARY ARTERY DISEASE
     Dosage: 75 MG, QD
     Route: 048
     Dates: start: 19951004
  7. PANTOPRAZOLE [Concomitant]
     Indication: GASTRITIS
     Dosage: 2 MG, QD
     Route: 048
     Dates: start: 20100301
  8. PENTOXIFYLLINE [Concomitant]
     Indication: INTERMITTENT CLAUDICATION
     Dosage: 600 MG, QD
     Route: 048
     Dates: start: 19951130
  9. ALISKIREN [Suspect]
     Indication: CARDIAC FAILURE
     Dosage: UNK
     Route: 048
     Dates: start: 20110916
  10. DIGITALIS [Concomitant]
     Indication: CARDIAC FAILURE CHRONIC
     Dosage: 100 MG, QD
     Route: 048
     Dates: start: 19951130

REACTIONS (1)
  - SUDDEN CARDIAC DEATH [None]
